FAERS Safety Report 9676112 (Version 1)
Quarter: 2013Q4

REPORT INFORMATION
  Report Type: Spontaneous
  Country: LT (occurrence: LT)
  Receive Date: 20131107
  Receipt Date: 20131107
  Transmission Date: 20140711
  Serious: Yes (Life-Threatening, Hospitalization)
  Sender: FDA-Public Use
  Company Number: PHHY2013LT123735

PATIENT
  Sex: Male

DRUGS (5)
  1. PAROXETINE [Suspect]
     Indication: SCHIZOPHRENIA, PARANOID TYPE
  2. QUETIAPINE [Interacting]
     Indication: SCHIZOPHRENIA, PARANOID TYPE
  3. SULPIRIDE [Interacting]
     Indication: SCHIZOPHRENIA, PARANOID TYPE
  4. BUSPIRONE [Interacting]
     Indication: SCHIZOPHRENIA, PARANOID TYPE
  5. SIBUTRAMINE [Suspect]

REACTIONS (21)
  - Serotonin syndrome [Unknown]
  - Blood pH decreased [Unknown]
  - Anxiety [Unknown]
  - Personality disorder [Unknown]
  - Disorientation [Unknown]
  - Pyrexia [Unknown]
  - Tachycardia [Unknown]
  - Hyperhidrosis [Unknown]
  - Mydriasis [Unknown]
  - Hypertonia [Unknown]
  - Leukocytosis [Unknown]
  - Tremor [Unknown]
  - Hyperreflexia [Unknown]
  - Blood pressure increased [Unknown]
  - Respiratory rate increased [Unknown]
  - Blood creatine phosphokinase increased [Unknown]
  - Toxicity to various agents [Unknown]
  - Agitation [Unknown]
  - Blood creatinine increased [Unknown]
  - PCO2 decreased [Unknown]
  - Blood lactic acid increased [Unknown]
